FAERS Safety Report 20177030 (Version 1)
Quarter: 2021Q4

REPORT INFORMATION
  Report Type: Spontaneous
  Country: US (occurrence: None)
  Receive Date: 20211211
  Receipt Date: 20211211
  Transmission Date: 20220303
  Serious: No
  Sender: FDA-Public Use
  Company Number: None

PATIENT
  Age: 79 Year
  Sex: Female
  Weight: 77.85 kg

DRUGS (1)
  1. EZETIMIBE [Suspect]
     Active Substance: EZETIMIBE
     Indication: Blood cholesterol
     Dosage: OTHER QUANTITY : 1 TABLET(S);?
     Route: 048
     Dates: start: 20211015, end: 20211201

REACTIONS (7)
  - Muscular weakness [None]
  - Rash [None]
  - Diarrhoea [None]
  - Vulvovaginal pruritus [None]
  - Skin erosion [None]
  - Dysuria [None]
  - Grip strength decreased [None]

NARRATIVE: CASE EVENT DATE: 20211201
